FAERS Safety Report 21994781 (Version 4)
Quarter: 2023Q2

REPORT INFORMATION
  Report Type: Report from Study
  Country: US (occurrence: US)
  Receive Date: 20230215
  Receipt Date: 20230428
  Transmission Date: 20230722
  Serious: Yes (Other)
  Sender: FDA-Public Use
  Company Number: US-TEVA-2023-US-2854144

PATIENT
  Age: 27 Year
  Sex: Female

DRUGS (8)
  1. CLARAVIS [Suspect]
     Active Substance: ISOTRETINOIN
     Indication: Product used for unknown indication
     Dosage: 30 MG
  2. CLARAVIS [Suspect]
     Active Substance: ISOTRETINOIN
     Dosage: 80 MILLIGRAM DAILY; 40 MG
     Dates: start: 20220221, end: 20230128
  3. CLARAVIS [Suspect]
     Active Substance: ISOTRETINOIN
     Dosage: 20 MG
  4. CLARAVIS [Suspect]
     Active Substance: ISOTRETINOIN
     Dosage: 40 MG
     Dates: end: 20230127
  5. CLARAVIS [Suspect]
     Active Substance: ISOTRETINOIN
     Dosage: 80 MILLIGRAM DAILY;
     Dates: start: 20220219
  6. NUVARING [Suspect]
     Active Substance: ETHINYL ESTRADIOL\ETONOGESTREL
     Indication: Product used for unknown indication
     Route: 067
  7. ACYCLOVIR [Concomitant]
     Active Substance: ACYCLOVIR
     Indication: Product used for unknown indication
     Dosage: 400 MG
     Dates: start: 20230217, end: 20230227
  8. MY WAY [Concomitant]
     Active Substance: LEVONORGESTREL
     Indication: Product used for unknown indication
     Dosage: 1.5 MG
     Dates: start: 20221101

REACTIONS (4)
  - Unintended pregnancy [Unknown]
  - Ectopic pregnancy [Unknown]
  - Vaginal haemorrhage [Recovered/Resolved]
  - Headache [Recovered/Resolved]

NARRATIVE: CASE EVENT DATE: 20221101
